FAERS Safety Report 7390989-3 (Version None)
Quarter: 2011Q2

REPORT INFORMATION
  Report Type: 
  Country: None (occurrence: None)
  Receive Date: 20110404
  Receipt Date: 20110328
  Transmission Date: 20111010
  Serious: No
  Sender: FDA-Public Use
  Company Number: US-PFIZER INC-2011032790

PATIENT
  Sex: Male
  Weight: 72.6 kg

DRUGS (2)
  1. CELEBREX [Suspect]
     Indication: ARTHRITIS
     Dosage: 200 MG, DAILY
     Route: 048
     Dates: start: 20110201
  2. AMLODIPINE [Concomitant]
     Indication: HYPERTENSION
     Dosage: UNK, DAILY

REACTIONS (2)
  - PAIN [None]
  - DRUG INEFFECTIVE [None]
